FAERS Safety Report 19412766 (Version 1)
Quarter: 2021Q2

REPORT INFORMATION
  Report Type: Spontaneous
  Country: US (occurrence: US)
  Receive Date: 20210614
  Receipt Date: 20210614
  Transmission Date: 20210717
  Serious: No
  Sender: FDA-Public Use
  Company Number: US-ARBOR PHARMACEUTICALS, LLC-US-2020ARB000914

PATIENT
  Sex: Female

DRUGS (1)
  1. NYMALIZE [Suspect]
     Active Substance: NIMODIPINE
     Indication: HYPOXIC-ISCHAEMIC ENCEPHALOPATHY
     Dosage: UNK
     Route: 048

REACTIONS (1)
  - Off label use [Unknown]
